FAERS Safety Report 20743645 (Version 3)
Quarter: 2022Q3

REPORT INFORMATION
  Report Type: Spontaneous
  Country: US (occurrence: US)
  Receive Date: 20220425
  Receipt Date: 20220706
  Transmission Date: 20221027
  Serious: Yes (Other)
  Sender: FDA-Public Use
  Company Number: US-JNJFOC-20220439777

PATIENT
  Age: 37 Year
  Sex: Female

DRUGS (28)
  1. ELMIRON [Suspect]
     Active Substance: PENTOSAN POLYSULFATE SODIUM
     Indication: Cystitis interstitial
     Dosage: 2 CAPSULES TWICE A DAY (400 MG/DAY)
     Route: 048
     Dates: start: 20040601
  2. ELMIRON [Suspect]
     Active Substance: PENTOSAN POLYSULFATE SODIUM
     Dosage: 100 MG CAPSULE OPENED AND PUT INTO CATHETER INTRAVESICAL TREATMENTS, AS MANY AS THREE TIMES PER DAY
     Route: 043
     Dates: start: 20050201, end: 20180731
  3. LITHIUM CARBONATE [Concomitant]
     Active Substance: LITHIUM CARBONATE
     Indication: Bipolar disorder
     Route: 065
     Dates: start: 19860101
  4. LITHIUM CARBONATE [Concomitant]
     Active Substance: LITHIUM CARBONATE
     Indication: Bipolar I disorder
  5. LIALDA [Concomitant]
     Active Substance: MESALAMINE
     Indication: Autoimmune disorder
     Dates: start: 20060523
  6. ASACOL [Concomitant]
     Active Substance: MESALAMINE
     Indication: Autoimmune disorder
     Dates: start: 20060523
  7. LIDODERM [Concomitant]
     Active Substance: LIDOCAINE
     Indication: Cystitis interstitial
     Dates: start: 20050422, end: 20181127
  8. XYLOCAINE [Concomitant]
     Active Substance: LIDOCAINE HYDROCHLORIDE
     Indication: Cystitis interstitial
  9. KENALOG [Concomitant]
     Active Substance: TRIAMCINOLONE ACETONIDE
     Indication: Cystitis interstitial
     Dates: start: 20050221, end: 20130115
  10. GENTAMICIN [Concomitant]
     Active Substance: GENTAMICIN
     Indication: Cystitis interstitial
     Dates: start: 20050221, end: 20130115
  11. SODIUM BICARBONATE [Concomitant]
     Active Substance: SODIUM BICARBONATE
     Indication: Cystitis interstitial
     Dates: start: 20050422, end: 20181116
  12. LYRICA [Concomitant]
     Active Substance: PREGABALIN
     Indication: Fibromyalgia
     Dates: start: 20091103, end: 20200710
  13. VALIUM [Concomitant]
     Active Substance: DIAZEPAM
     Indication: Bipolar disorder
     Dates: start: 20050421
  14. VALIUM [Concomitant]
     Active Substance: DIAZEPAM
     Indication: Bipolar I disorder
  15. INDERAL [Concomitant]
     Active Substance: PROPRANOLOL HYDROCHLORIDE
     Indication: Tremor
     Dosage: 10 MG, 20 MG
     Dates: start: 20000101
  16. ULTRAM [Concomitant]
     Active Substance: TRAMADOL HYDROCHLORIDE
     Indication: Pain
     Dates: start: 20050819, end: 20180618
  17. NEURONTIN [Concomitant]
     Active Substance: GABAPENTIN
     Indication: Pain
     Dates: start: 20050707
  18. LOMOTIL [Concomitant]
     Active Substance: ATROPINE SULFATE\DIPHENOXYLATE HYDROCHLORIDE
     Indication: Autoimmune disorder
     Dates: start: 20060420
  19. DEPAKOTE [Concomitant]
     Active Substance: DIVALPROEX SODIUM
     Indication: Bipolar disorder
     Dates: start: 20161019
  20. DEPAKOTE [Concomitant]
     Active Substance: DIVALPROEX SODIUM
     Indication: Bipolar I disorder
  21. CYMBALTA [Concomitant]
     Active Substance: DULOXETINE HYDROCHLORIDE
     Indication: Bipolar disorder
     Dates: start: 20141204, end: 20200421
  22. CYMBALTA [Concomitant]
     Active Substance: DULOXETINE HYDROCHLORIDE
     Indication: Bipolar I disorder
  23. PRIMIDONE [Concomitant]
     Active Substance: PRIMIDONE
     Indication: Bipolar disorder
     Dates: start: 20180813
  24. PRIMIDONE [Concomitant]
     Active Substance: PRIMIDONE
     Indication: Bipolar I disorder
  25. MERCAPTOPURINE [Concomitant]
     Active Substance: MERCAPTOPURINE
     Indication: Crohn^s disease
     Dates: start: 20020101, end: 20110331
  26. XANAX [Concomitant]
     Active Substance: ALPRAZOLAM
     Indication: Bipolar disorder
     Dates: start: 20000101, end: 20050121
  27. XANAX [Concomitant]
     Active Substance: ALPRAZOLAM
     Indication: Bipolar I disorder
  28. WELCHOL [Concomitant]
     Active Substance: COLESEVELAM HYDROCHLORIDE
     Indication: Crohn^s disease
     Dates: start: 20020101, end: 20091222

REACTIONS (5)
  - Maculopathy [Not Recovered/Not Resolved]
  - Toxicity to various agents [Not Recovered/Not Resolved]
  - Gingival bleeding [Unknown]
  - Off label use [Unknown]
  - Off label use [Unknown]

NARRATIVE: CASE EVENT DATE: 20040601
